FAERS Safety Report 22982569 (Version 5)
Quarter: 2025Q4

REPORT INFORMATION
  Report Type: Report from Study
  Country: EU (occurrence: EU)
  Receive Date: 20230926
  Receipt Date: 20251017
  Transmission Date: 20260118
  Serious: Yes (Hospitalization, Other)
  Sender: ABBVIE
  Company Number: EU-ABBVIE-5417909

PATIENT
  Age: 74 Year
  Sex: Female

DRUGS (8)
  1. CARBIDOPA [Suspect]
     Active Substance: CARBIDOPA
     Indication: Parkinson^s disease
     Dosage: MORNING DOSE: 8.0ML; CONTINUOUS RATE: 2.9ML/H; EXTRA DOSE: 1.4ML
     Route: 050
  2. CARBIDOPA [Suspect]
     Active Substance: CARBIDOPA
     Dosage: MORNING DOSE: 8.0ML; CONTINUOUS RATE: 2.9ML/H; EXTRA DOSE: 1.4ML
     Route: 050
  3. CARBIDOPA [Suspect]
     Active Substance: CARBIDOPA
     Dosage: MORNING DOSE: 8.0ML; CONTINUOUS RATE: 3.1ML/H; EXTRA DOSE: 1.3ML
     Route: 050
  4. CARBIDOPA [Suspect]
     Active Substance: CARBIDOPA
     Dosage: MD: 8.8 ML, CR: 2.3 ML/H, ED: 1.4 ML
     Route: 050
  5. CARBIDOPA [Suspect]
     Active Substance: CARBIDOPA
     Dosage: MD: 8.8 ML, CR:3.1 ML/H, ED: 1.4 ML
     Route: 050
     Dates: start: 20201128
  6. Enlift [Concomitant]
     Indication: Product used for unknown indication
     Route: 048
  7. Dospelin [Concomitant]
     Indication: Product used for unknown indication
     Route: 048
  8. SEROQUEL [Concomitant]
     Active Substance: QUETIAPINE FUMARATE
     Indication: Product used for unknown indication
     Route: 048

REACTIONS (5)
  - Hip fracture [Recovered/Resolved]
  - Fall [Recovered/Resolved]
  - Joint dislocation [Recovered/Resolved]
  - Weight decreased [Not Recovered/Not Resolved]
  - Gait disturbance [Not Recovered/Not Resolved]

NARRATIVE: CASE EVENT DATE: 20230101
